FAERS Safety Report 12978103 (Version 1)
Quarter: 2016Q4

REPORT INFORMATION
  Report Type: Spontaneous
  Country: US (occurrence: US)
  Receive Date: 20161126
  Receipt Date: 20161126
  Transmission Date: 20170207
  Serious: Yes (Other)
  Sender: FDA-Public Use
  Company Number: None

PATIENT
  Age: 64 Year
  Sex: Female
  Weight: 60.75 kg

DRUGS (22)
  1. NASONEX [Concomitant]
     Active Substance: MOMETASONE FUROATE
  2. VITAMIN C [Concomitant]
     Active Substance: ASCORBIC ACID
  3. ULTIMATE FLORA [Concomitant]
     Active Substance: PROBIOTICS NOS
  4. CRESTOR [Concomitant]
     Active Substance: ROSUVASTATIN CALCIUM
  5. ASTEPRO [Concomitant]
     Active Substance: AZELASTINE HYDROCHLORIDE
  6. TRIAMCINOLONE [Concomitant]
     Active Substance: TRIAMCINOLONE
  7. BUPROPION. [Concomitant]
     Active Substance: BUPROPION
  8. ADVAIR HFA [Concomitant]
     Active Substance: FLUTICASONE PROPIONATE\SALMETEROL XINAFOATE
  9. ZYRTEC [Concomitant]
     Active Substance: CETIRIZINE HYDROCHLORIDE
  10. BIOTIN [Concomitant]
     Active Substance: BIOTIN
  11. LOSARTAN POTASSIUM. [Concomitant]
     Active Substance: LOSARTAN POTASSIUM
  12. DEXILANT [Concomitant]
     Active Substance: DEXLANSOPRAZOLE
  13. TOVIAZ [Suspect]
     Active Substance: FESOTERODINE FUMARATE
     Indication: HYPERTONIC BLADDER
     Dosage: ?          QUANTITY:1 TABLET(S);?
     Route: 048
     Dates: start: 20161006, end: 20161010
  14. ESTRACE [Concomitant]
     Active Substance: ESTRADIOL
  15. ASPIRIN. [Concomitant]
     Active Substance: ASPIRIN
  16. VITAMIN D3 [Concomitant]
     Active Substance: CHOLECALCIFEROL
  17. MIRALAX [Concomitant]
     Active Substance: POLYETHYLENE GLYCOL 3350
  18. PROVENTIL HFA [Concomitant]
     Active Substance: ALBUTEROL SULFATE
  19. SALINE NASAL SPRAY [Concomitant]
     Active Substance: SODIUM CHLORIDE
  20. CYCLOBENZAPRINE [Concomitant]
     Active Substance: CYCLOBENZAPRINE
  21. MUCINEX [Concomitant]
     Active Substance: GUAIFENESIN
  22. ONE A DAY WOMEN^S [Concomitant]
     Active Substance: MINERALS\VITAMINS

REACTIONS (2)
  - Epistaxis [None]
  - Blood pressure increased [None]

NARRATIVE: CASE EVENT DATE: 20161010
